FAERS Safety Report 5075688-5 (Version None)
Quarter: 2006Q3

REPORT INFORMATION
  Report Type: 
  Country: None (occurrence: None)
  Receive Date: 20060804
  Receipt Date: 20060727
  Transmission Date: 20061208
  Serious: Yes (Other)
  Sender: FDA-Public Use
  Company Number: CIP06001713

PATIENT
  Age: 65 Year
  Sex: Female
  Weight: 51 kg

DRUGS (3)
  1. ACTONEL [Suspect]
     Indication: OSTEOPOROSIS
     Dosage: 35 MG ONCE WEEKLY, ORAL
     Route: 048
     Dates: start: 20041005
  2. CALPEROS D3 (CALCIUM CARBONATE, COLECALCIFEROL) [Concomitant]
  3. LIVIAL [Concomitant]

REACTIONS (2)
  - BONE EROSION [None]
  - OSTEONECROSIS [None]
